FAERS Safety Report 26094918 (Version 7)
Quarter: 2025Q4

REPORT INFORMATION
  Report Type: Report from Study
  Country: US (occurrence: US)
  Receive Date: 20251126
  Receipt Date: 20251231
  Transmission Date: 20260119
  Serious: Yes (Death, Hospitalization)
  Sender: ABBVIE
  Company Number: US-ABBVIE-6564081

PATIENT
  Age: 64 Year
  Sex: Male
  Weight: 90.7 kg

DRUGS (5)
  1. VYALEV [Suspect]
     Active Substance: FOSCARBIDOPA\FOSLEVODOPA
     Indication: Parkinson^s disease
     Dosage: 24 HOUR INFUSION
     Route: 058
     Dates: start: 20250702, end: 20251124
  2. VYALEV [Suspect]
     Active Substance: FOSCARBIDOPA\FOSLEVODOPA
     Dosage: 24 HOUR INFUSION
     Route: 058
     Dates: start: 20250702, end: 20251124
  3. MYRBETRIQ [Concomitant]
     Active Substance: MIRABEGRON
     Indication: Urinary incontinence
  4. CREATINE [Concomitant]
     Active Substance: CREATINE
     Indication: Product used for unknown indication
  5. VITAMIN D [Concomitant]
     Active Substance: VITAMIN D NOS
     Indication: Product used for unknown indication

REACTIONS (5)
  - Brain injury [Fatal]
  - Aspiration [Not Recovered/Not Resolved]
  - Cardiac arrest [Fatal]
  - Mechanical ventilation [Not Recovered/Not Resolved]
  - Pneumonitis aspiration [Fatal]

NARRATIVE: CASE EVENT DATE: 20251101
